FAERS Safety Report 4282143-9 (Version None)
Quarter: 2004Q1

REPORT INFORMATION
  Report Type: 
  Country: None (occurrence: None)
  Receive Date: 20040112
  Receipt Date: 20031007
  Transmission Date: 20041129
  Serious: Yes (Life-Threatening, Hospitalization)
  Sender: FDA-Public Use
  Company Number: US-JNJFOC-20030805603

PATIENT
  Age: 65 Year
  Sex: Female

DRUGS (6)
  1. REOPRO [Suspect]
     Dosage: SEE IMAGE
     Route: 042
     Dates: start: 20030729
  2. REOPRO [Suspect]
     Dosage: SEE IMAGE
     Route: 042
     Dates: start: 20030729
  3. ACETYLSALICYLIC ACID SRT [Concomitant]
  4. ANGIOMAX [Concomitant]
  5. PLAVIX [Concomitant]
  6. PREDNISONE [Concomitant]

REACTIONS (2)
  - HEPATIC HAEMORRHAGE [None]
  - SPLENIC HAEMATOMA [None]
